FAERS Safety Report 18397366 (Version 1)
Quarter: 2020Q4

REPORT INFORMATION
  Report Type: Spontaneous
  Country: US (occurrence: US)
  Receive Date: 20201017
  Receipt Date: 20201017
  Transmission Date: 20210114
  Serious: Yes (Other)
  Sender: FDA-Public Use
  Company Number: None

PATIENT
  Age: 77 Year
  Sex: Female

DRUGS (1)
  1. RAYALDEE [Suspect]
     Active Substance: CALCIFEDIOL
     Indication: BLOOD PARATHYROID HORMONE INCREASED
     Route: 048
     Dates: start: 20200709, end: 20201015

REACTIONS (2)
  - Drug intolerance [None]
  - Dyspepsia [None]

NARRATIVE: CASE EVENT DATE: 20201003
